FAERS Safety Report 4790203-9 (Version None)
Quarter: 2005Q4

REPORT INFORMATION
  Report Type: 
  Country: None (occurrence: None)
  Receive Date: 20051006
  Receipt Date: 20050926
  Transmission Date: 20060501
  Serious: Yes (Disabling)
  Sender: FDA-Public Use
  Company Number: 2005GB01875

PATIENT
  Age: 49 Year
  Sex: Female

DRUGS (5)
  1. OMEPRAZOLE [Suspect]
     Route: 048
     Dates: start: 20050412, end: 20050426
  2. PROGESTERONE [Concomitant]
     Indication: HAEMORRHAGE
     Route: 048
  3. MEFENAMIC ACID [Concomitant]
     Indication: PAIN
     Route: 048
  4. ALBUTEROL [Concomitant]
     Indication: ASTHMA
     Route: 048
  5. AMITRIPTYLINE HCL [Concomitant]
     Indication: SLEEP DISORDER
     Route: 048
     Dates: start: 20041001, end: 20050501

REACTIONS (1)
  - MUSCLE TWITCHING [None]
